FAERS Safety Report 7558545-1 (Version None)
Quarter: 2011Q2

REPORT INFORMATION
  Report Type: 
  Country: None (occurrence: None)
  Receive Date: 20110621
  Receipt Date: 20110610
  Transmission Date: 20111010
  Serious: Yes (Other)
  Sender: FDA-Public Use
  Company Number: GB-AMGEN-GBRCT2011030786

PATIENT
  Age: 5 Year
  Sex: Female
  Weight: 20.5 kg

DRUGS (7)
  1. FLOXACILLIN SODIUM [Concomitant]
     Dosage: 250 MG, 3X/DAY
     Route: 048
  2. ERYTHROMYCIN [Concomitant]
     Indication: ECZEMA INFECTED
     Dosage: UNK
     Route: 048
  3. ETANERCEPT [Suspect]
     Dosage: 480 UNK,
     Dates: start: 20040823, end: 20040824
  4. ETANERCEPT [Suspect]
     Indication: JUVENILE ARTHRITIS
     Dosage: 6.3 MG, 2 TIMES/WK
     Dates: start: 20030929, end: 20040617
  5. VALLERGAN [Concomitant]
     Dosage: 5 MG, 3X/DAY
     Route: 048
  6. ACYCLOVIR [Concomitant]
     Dosage: 200 MG, 5X/DAILY
     Route: 048
  7. PIRITON [Concomitant]
     Dosage: 2 MG, 1X/DAY
     Route: 048

REACTIONS (2)
  - ECZEMA [None]
  - ECZEMA INFECTED [None]
